FAERS Safety Report 25543107 (Version 1)
Quarter: 2025Q3

REPORT INFORMATION
  Report Type: Spontaneous
  Country: US (occurrence: US)
  Receive Date: 20250711
  Receipt Date: 20250711
  Transmission Date: 20251021
  Serious: No
  Sender: GLENMARK
  Company Number: US-GLENMARK PHARMACEUTICALS-2024GMK095026

PATIENT

DRUGS (2)
  1. ADAPALENE [Suspect]
     Active Substance: ADAPALENE
     Indication: Acne
     Route: 065
  2. EFFACLAR [Suspect]
     Active Substance: ADAPALENE
     Indication: Acne
     Route: 065

REACTIONS (5)
  - Adverse drug reaction [Recovered/Resolved]
  - Dry skin [Recovered/Resolved]
  - Erythema [Recovered/Resolved]
  - Skin burning sensation [Unknown]
  - Skin exfoliation [Unknown]
